FAERS Safety Report 21955250 (Version 1)
Quarter: 2023Q1

REPORT INFORMATION
  Report Type: Spontaneous
  Country: US (occurrence: US)
  Receive Date: 20230206
  Receipt Date: 20230206
  Transmission Date: 20230417
  Serious: No
  Sender: FDA-Public Use
  Company Number: US-CADILA HEALTHCARE LIMITED-US-ZYDUS-082229

PATIENT

DRUGS (2)
  1. BOSENTAN [Suspect]
     Active Substance: BOSENTAN
     Indication: Pulmonary arterial hypertension
     Dosage: 31.25 MILLIGRAM, BID
     Dates: start: 20220610
  2. SILDENAFIL CITRATE [Concomitant]
     Active Substance: SILDENAFIL CITRATE
     Indication: Product used for unknown indication

REACTIONS (5)
  - Nasal congestion [Unknown]
  - Irritability [Unknown]
  - Rhinorrhoea [Unknown]
  - Insomnia [Unknown]
  - Nasopharyngitis [Unknown]

NARRATIVE: CASE EVENT DATE: 20220101
